FAERS Safety Report 5717767-2 (Version None)
Quarter: 2008Q2

REPORT INFORMATION
  Report Type: 
  Country: None (occurrence: None)
  Receive Date: 20080424
  Receipt Date: 20080421
  Transmission Date: 20081010
  Serious: No
  Sender: FDA-Public Use
  Company Number: APP200800315

PATIENT
  Sex: Male
  Weight: 104.3273 kg

DRUGS (1)
  1. HEPARIN SODIUM INJECTION [Suspect]
     Indication: CATHETERISATION CARDIAC
     Dosage: 6000 USP UNITS, ONCE, INTRAVENOUS
     Route: 042
     Dates: start: 20080401

REACTIONS (1)
  - DRUG EFFECT DECREASED [None]
